FAERS Safety Report 20752796 (Version 1)
Quarter: 2022Q2

REPORT INFORMATION
  Report Type: Spontaneous
  Country: US (occurrence: None)
  Receive Date: 20220426
  Receipt Date: 20220426
  Transmission Date: 20220721
  Serious: No
  Sender: FDA-Public Use
  Company Number: US-ROCHE-2897640

PATIENT
  Sex: Female

DRUGS (1)
  1. ESBRIET [Suspect]
     Active Substance: PIRFENIDONE
     Indication: Idiopathic pulmonary fibrosis
     Dosage: TAKE 1 TABLET 3 TIMES DAILY X 1 WEEK, THEN 2 TAB 3 TIMES DAILY X 1 WEEK THEN 3 TAB 3 TIMES DAILY WIT
     Route: 048

REACTIONS (4)
  - Memory impairment [Unknown]
  - Abdominal pain upper [Unknown]
  - Diarrhoea [Unknown]
  - Headache [Unknown]
